FAERS Safety Report 21526728 (Version 2)
Quarter: 2022Q4

REPORT INFORMATION
  Report Type: Spontaneous
  Country: TR (occurrence: None)
  Receive Date: 20221031
  Receipt Date: 20221115
  Transmission Date: 20230112
  Serious: Yes (Hospitalization, Other)
  Sender: FDA-Public Use
  Company Number: TR-ROCHE-3208666

PATIENT
  Age: 53 Year

DRUGS (9)
  1. OCRELIZUMAB [Suspect]
     Active Substance: OCRELIZUMAB
     Indication: Multiple sclerosis
     Dosage: 1ST DOSE
     Route: 042
     Dates: start: 20210428
  2. OCRELIZUMAB [Suspect]
     Active Substance: OCRELIZUMAB
     Dosage: 1ST DOSE (14 DAYS APART)
     Route: 042
     Dates: start: 20210512
  3. OCRELIZUMAB [Suspect]
     Active Substance: OCRELIZUMAB
     Dosage: 2ND DOSE:
     Route: 042
     Dates: start: 20211207
  4. OCRELIZUMAB [Suspect]
     Active Substance: OCRELIZUMAB
     Dosage: 3RD DOSE
     Route: 042
     Dates: start: 20220615
  5. LEVOTHYROXINE SODIUM [Concomitant]
     Active Substance: LEVOTHYROXINE SODIUM
     Indication: Hypothyroidism
  6. LIORESAL [Concomitant]
     Active Substance: BACLOFEN
     Indication: Paraparesis
  7. CIPRALEX [Concomitant]
     Active Substance: ESCITALOPRAM OXALATE
  8. TIZANIDINE [Concomitant]
     Active Substance: TIZANIDINE
  9. VENLAFAXINE HYDROCHLORIDE [Concomitant]
     Active Substance: VENLAFAXINE HYDROCHLORIDE

REACTIONS (4)
  - Pancreatitis acute [Recovered/Resolved]
  - Oedematous pancreatitis [Recovered/Resolved]
  - Hepatic steatosis [Unknown]
  - Cholelithiasis [Unknown]
